FAERS Safety Report 5484086-1 (Version None)
Quarter: 2007Q4

REPORT INFORMATION
  Report Type: 
  Country: None (occurrence: None)
  Receive Date: 20071009
  Receipt Date: 20071009
  Transmission Date: 20080405
  Serious: Yes (Other)
  Sender: FDA-Public Use
  Company Number: None

PATIENT
  Age: 53 Year
  Sex: Male
  Weight: 61.2356 kg

DRUGS (1)
  1. LIDODERM [Suspect]
     Indication: SPINAL CORD INJURY
     Dosage: 1 PATCH 12 HRS
     Dates: start: 20070921, end: 20070922

REACTIONS (4)
  - ARTHRALGIA [None]
  - ASTHENIA [None]
  - PAIN [None]
  - PAIN IN EXTREMITY [None]
